FAERS Safety Report 8281988-8 (Version None)
Quarter: 2012Q2

REPORT INFORMATION
  Report Type: 
  Country: None (occurrence: None)
  Receive Date: 20120410
  Receipt Date: 20120322
  Transmission Date: 20120825
  Serious: Yes (Congenital Anomaly, Other)
  Sender: FDA-Public Use
  Company Number: 20120186

PATIENT

DRUGS (4)
  1. LEVETIRACETAM [Suspect]
     Indication: EPILEPSY
     Dosage: 3000 MG
  2. LEVETIRACETAM [Suspect]
     Indication: AFFECTIVE DISORDER
     Dosage: 3000 MG
  3. LAMOTRIGINE [Suspect]
     Indication: AFFECTIVE DISORDER
     Dosage: 600 MG
  4. LAMOTRIGINE [Suspect]
     Indication: EPILEPSY
     Dosage: 600 MG

REACTIONS (2)
  - VENTRICULAR SEPTAL DEFECT [None]
  - MATERNAL DRUGS AFFECTING FOETUS [None]
